FAERS Safety Report 10256357 (Version 3)
Quarter: 2014Q3

REPORT INFORMATION
  Report Type: Spontaneous
  Country: US (occurrence: US)
  Receive Date: 20140624
  Receipt Date: 20140711
  Transmission Date: 20150326
  Serious: Yes (Hospitalization)
  Sender: FDA-Public Use
  Company Number: US-GILEAD-2014-0106576

PATIENT
  Sex: Female

DRUGS (5)
  1. TYVASO [Concomitant]
     Active Substance: TREPROSTINIL
  2. WARFARIN [Concomitant]
     Active Substance: WARFARIN
  3. LETAIRIS [Suspect]
     Active Substance: AMBRISENTAN
     Indication: PRODUCT USED FOR UNKNOWN INDICATION
     Route: 065
     Dates: start: 20140604
  4. REVATIO [Concomitant]
     Active Substance: SILDENAFIL CITRATE
  5. MACITENTAN [Concomitant]
     Active Substance: MACITENTAN

REACTIONS (4)
  - Electrolyte imbalance [Unknown]
  - Adverse event [Unknown]
  - Renal disorder [Unknown]
  - Blood sodium decreased [Unknown]
